FAERS Safety Report 6423693-6 (Version None)
Quarter: 2009Q4

REPORT INFORMATION
  Report Type: 
  Country: None (occurrence: None)
  Receive Date: 20091102
  Receipt Date: 20091019
  Transmission Date: 20100525
  Serious: Yes (Death, Hospitalization, Other)
  Sender: FDA-Public Use
  Company Number: US-PFIZER INC-2009266740

PATIENT
  Age: 38 Year
  Sex: Female
  Weight: 73 kg

DRUGS (4)
  1. SERTRALINE HCL [Suspect]
  2. VERAPAMIL HCL [Suspect]
     Indication: ANGINA PECTORIS
  3. NIFEDIPINE [Suspect]
  4. ATENOLOL [Suspect]

REACTIONS (2)
  - CARDIAC ARREST [None]
  - OVERDOSE [None]
